FAERS Safety Report 6377410-9 (Version None)
Quarter: 2009Q3

REPORT INFORMATION
  Report Type: 
  Country: None (occurrence: None)
  Receive Date: 20090923
  Receipt Date: 20090923
  Transmission Date: 20100115
  Serious: Yes (Life-Threatening, Hospitalization)
  Sender: FDA-Public Use
  Company Number: None

PATIENT
  Age: 25 Year
  Sex: Female
  Weight: 64 kg

DRUGS (3)
  1. MORPHINE [Suspect]
     Indication: PAIN
     Dosage: 4MG IV ONCE
     Dates: start: 20090817
  2. ONDANSETRON [Concomitant]
  3. PROMETHAZINE [Concomitant]

REACTIONS (4)
  - MENTAL STATUS CHANGES [None]
  - RESPIRATORY RATE DECREASED [None]
  - SEDATION [None]
  - SOMNOLENCE [None]
